FAERS Safety Report 4585408-6 (Version None)
Quarter: 2005Q1

REPORT INFORMATION
  Report Type: 
  Country: None (occurrence: None)
  Receive Date: 20050217
  Receipt Date: 20041119
  Transmission Date: 20050727
  Serious: Yes (Death)
  Sender: FDA-Public Use
  Company Number: DE-ABBOTT-04P-062-0281189-00

PATIENT
  Sex: Female

DRUGS (6)
  1. HUMIRA [Suspect]
     Indication: RHEUMATOID ARTHRITIS
     Route: 058
     Dates: start: 20040802, end: 20041005
  2. PREDNISOLONE [Concomitant]
     Indication: RHEUMATOID ARTHRITIS
     Route: 048
  3. TRAMOL TROPFEN [Concomitant]
     Indication: RHEUMATOID ARTHRITIS
     Route: 048
  4. L-THYROXIN 100 [Concomitant]
     Indication: HYPOTHYROIDISM
     Route: 048
  5. FENTANYL [Concomitant]
     Indication: DRUG USE FOR UNKNOWN INDICATION
     Dosage: TRANSCUTANEOUS
  6. NITRENDIPINE [Concomitant]
     Indication: HYPERTENSION
     Route: 048

REACTIONS (1)
  - MYOCARDIAL INFARCTION [None]
